FAERS Safety Report 7751922-5 (Version None)
Quarter: 2011Q3

REPORT INFORMATION
  Report Type: 
  Country: None (occurrence: None)
  Receive Date: 20110914
  Receipt Date: 20110914
  Transmission Date: 20111222
  Serious: Yes (Other)
  Sender: FDA-Public Use
  Company Number: None

PATIENT
  Sex: Male

DRUGS (2)
  1. GENOTROPIN [Suspect]
     Indication: IATROGENIC INJURY
     Dosage: 0.5MG DAILY SUBCUTANEOUS
     Route: 058
     Dates: start: 20110901, end: 20110901
  2. GENOTROPIN [Suspect]
     Indication: HYPOTHALAMO-PITUITARY DISORDER
     Dosage: 0.5MG DAILY SUBCUTANEOUS
     Route: 058
     Dates: start: 20110901, end: 20110901

REACTIONS (2)
  - DRUG HYPERSENSITIVITY [None]
  - HYPERSOMNIA [None]
